FAERS Safety Report 17380697 (Version 1)
Quarter: 2020Q1

REPORT INFORMATION
  Report Type: Spontaneous
  Country: US (occurrence: US)
  Receive Date: 20200206
  Receipt Date: 20200206
  Transmission Date: 20200409
  Serious: Yes (Other)
  Sender: FDA-Public Use
  Company Number: None

PATIENT
  Age: 10 Year
  Sex: Male
  Weight: 36.9 kg

DRUGS (2)
  1. OSELTAMIVIR PHOSPHATE CAPSULES USP 30 MG [Suspect]
     Active Substance: OSELTAMIVIR PHOSPHATE
     Indication: INFLUENZA
     Dosage: ?          QUANTITY:2 TABLET(S);?
     Route: 048
     Dates: start: 20200205, end: 20200205
  2. ELDERBERRY SYRUP [Concomitant]
     Active Substance: DIETARY SUPPLEMENT\HERBALS

REACTIONS (4)
  - Mental disorder [None]
  - Delusion [None]
  - Hallucination [None]
  - Emotional disorder [None]

NARRATIVE: CASE EVENT DATE: 20200205
